FAERS Safety Report 17335246 (Version 1)
Quarter: 2020Q1

REPORT INFORMATION
  Report Type: Spontaneous
  Country: JP (occurrence: JP)
  Receive Date: 20200128
  Receipt Date: 20200128
  Transmission Date: 20200409
  Serious: Yes (Other)
  Sender: FDA-Public Use
  Company Number: JP-BRISTOL-MYERS SQUIBB COMPANY-BMS-2020-005838

PATIENT
  Age: 62 Year
  Sex: Male

DRUGS (2)
  1. KENACORT-A [Suspect]
     Active Substance: TRIAMCINOLONE ACETONIDE
     Indication: MUSCULOSKELETAL PAIN
     Dosage: UNAVAILABLE
     Route: 030
     Dates: start: 201911
  2. XYLOCAINE #1 [Concomitant]
     Active Substance: LIDOCAINE
     Indication: MUSCULOSKELETAL PAIN
     Route: 030

REACTIONS (7)
  - Feeling abnormal [Unknown]
  - Rotator cuff syndrome [Unknown]
  - Myalgia [Unknown]
  - Muscular weakness [Unknown]
  - Musculoskeletal pain [Unknown]
  - Arthritis [Unknown]
  - Seizure [Unknown]
